FAERS Safety Report 7503925-3 (Version None)
Quarter: 2011Q2

REPORT INFORMATION
  Report Type: 
  Country: None (occurrence: None)
  Receive Date: 20110518
  Receipt Date: 20110505
  Transmission Date: 20111010
  Serious: Yes (Hospitalization)
  Sender: FDA-Public Use
  Company Number: DSM-2011-00236

PATIENT
  Age: 73 Year
  Sex: Female

DRUGS (1)
  1. VOTUM PLUS (HYDROCHLOROTHIAZIDE, OLMESARTAN MEDOXOMIL) (TABLET) (HYDRO [Suspect]
     Indication: HYPERTENSION
     Dosage: 20/25 MG, ORAL
     Route: 048
     Dates: start: 20080501

REACTIONS (5)
  - DIARRHOEA [None]
  - HYPOKALAEMIA [None]
  - DEHYDRATION [None]
  - VOMITING [None]
  - POISONING [None]
